FAERS Safety Report 6296023-0 (Version None)
Quarter: 2009Q3

REPORT INFORMATION
  Report Type: 
  Country: None (occurrence: None)
  Receive Date: 20090804
  Receipt Date: 20090723
  Transmission Date: 20100115
  Serious: Yes (Other)
  Sender: FDA-Public Use
  Company Number: JP-PFIZER INC-2009248519

PATIENT
  Age: 60 Year

DRUGS (1)
  1. DIFLUCAN [Suspect]
     Dosage: 200 MG, 1X/DAY

REACTIONS (1)
  - ARRHYTHMIA [None]
